FAERS Safety Report 17534714 (Version 2)
Quarter: 2020Q2

REPORT INFORMATION
  Report Type: Spontaneous
  Country: CA (occurrence: CA)
  Receive Date: 20200312
  Receipt Date: 20200409
  Transmission Date: 20200713
  Serious: No
  Sender: FDA-Public Use
  Company Number: CA-AKCEA THERAPEUTICS-2019IS001481

PATIENT

DRUGS (4)
  1. DIFLUNISAL. [Concomitant]
     Active Substance: DIFLUNISAL
     Indication: PRODUCT USED FOR UNKNOWN INDICATION
     Dosage: 250 MG, BID
     Route: 048
  2. TEA, GREEN [Concomitant]
     Active Substance: GREEN TEA LEAF
     Indication: PRODUCT USED FOR UNKNOWN INDICATION
     Dosage: 400 MG, QD
     Route: 048
  3. PRILOSEC [Concomitant]
     Active Substance: OMEPRAZOLE MAGNESIUM
     Indication: GASTROOESOPHAGEAL REFLUX DISEASE
     Dosage: 20 MG, QD
     Route: 065
     Dates: start: 201712
  4. TEGSEDI [Suspect]
     Active Substance: INOTERSEN SODIUM
     Indication: HEREDITARY NEUROPATHIC AMYLOIDOSIS
     Dosage: 284 MG, 1/WEEK
     Route: 058
     Dates: start: 20190227

REACTIONS (6)
  - Injection site pruritus [Not Recovered/Not Resolved]
  - Neutrophil count decreased [Recovered/Resolved]
  - Lymphocyte count increased [Recovered/Resolved]
  - Lymphocyte count abnormal [Recovered/Resolved]
  - Product dose omission [Unknown]
  - Injection site bruising [Not Recovered/Not Resolved]

NARRATIVE: CASE EVENT DATE: 20190306
